FAERS Safety Report 14780187 (Version 1)
Quarter: 2018Q2

REPORT INFORMATION
  Report Type: Spontaneous
  Country: US (occurrence: US)
  Receive Date: 20180412
  Receipt Date: 20180412
  Transmission Date: 20180711
  Serious: Yes (Hospitalization)
  Sender: FDA-Public Use
  Company Number: None

PATIENT
  Age: 25 Year
  Sex: Male

DRUGS (1)
  1. OPSUMIT [Suspect]
     Active Substance: MACITENTAN
     Indication: PULMONARY ARTERIAL HYPERTENSION
     Route: 048
     Dates: start: 20151105

REACTIONS (5)
  - Device occlusion [None]
  - Anxiety [None]
  - Application site rash [None]
  - Erythema [None]
  - Rash pruritic [None]

NARRATIVE: CASE EVENT DATE: 20180315
